FAERS Safety Report 10034249 (Version 1)
Quarter: 2014Q1

REPORT INFORMATION
  Report Type: Spontaneous
  Country: US (occurrence: None)
  Receive Date: 20140324
  Receipt Date: 20140324
  Transmission Date: 20141002
  Serious: Yes (Disabling)
  Sender: FDA-Public Use
  Company Number: None

PATIENT
  Age: 50 Year
  Sex: Female
  Weight: 111.59 kg

DRUGS (1)
  1. LEVAQUIN [Suspect]
     Indication: SINUSITIS
     Dosage: 1 TABLET TAKEN BY MOUTH
     Route: 048
     Dates: start: 20140301, end: 20140308

REACTIONS (8)
  - Tendonitis [None]
  - Pain in extremity [None]
  - Gait disturbance [None]
  - Injury [None]
  - Swelling [None]
  - Contusion [None]
  - Muscle injury [None]
  - Muscle rupture [None]
